FAERS Safety Report 8576583-7 (Version None)
Quarter: 2012Q3

REPORT INFORMATION
  Report Type: 
  Country: None (occurrence: None)
  Receive Date: 20120807
  Receipt Date: 20120727
  Transmission Date: 20120928
  Serious: No
  Sender: FDA-Public Use
  Company Number: US-ASTRAZENECA-2012SE53678

PATIENT
  Age: 46 Year
  Sex: Female
  Weight: 118.8 kg

DRUGS (2)
  1. BP MEDICINE [Concomitant]
  2. ANASTROZOLE [Suspect]
     Indication: BREAST CANCER
     Route: 048
     Dates: start: 20110601

REACTIONS (2)
  - WEIGHT INCREASED [None]
  - DRUG SCREEN FALSE POSITIVE [None]
